FAERS Safety Report 4327702-X (Version None)
Quarter: 2004Q1

REPORT INFORMATION
  Report Type: 
  Country: None (occurrence: None)
  Receive Date: 20040331
  Receipt Date: 20040323
  Transmission Date: 20041129
  Serious: Yes (Death, Life-Threatening)
  Sender: FDA-Public Use
  Company Number: JP-BRISTOL-MYERS SQUIBB COMPANY-12540472

PATIENT
  Sex: Female

DRUGS (2)
  1. PARAPLATIN [Suspect]
     Indication: OVARIAN CANCER
     Route: 042
  2. TAXOL [Suspect]
     Indication: OVARIAN CANCER
     Route: 042

REACTIONS (2)
  - INFECTION [None]
  - NEUTROPHIL COUNT DECREASED [None]
